FAERS Safety Report 10351167 (Version 1)
Quarter: 2014Q3

REPORT INFORMATION
  Report Type: Report from Study
  Country: BR (occurrence: BR)
  Receive Date: 20140730
  Receipt Date: 20140730
  Transmission Date: 20150326
  Serious: Yes (Other)
  Sender: FDA-Public Use
  Company Number: PHHY2014BR092513

PATIENT
  Sex: Female
  Weight: 54 kg

DRUGS (3)
  1. EXELON [Suspect]
     Active Substance: RIVASTIGMINE TARTRATE
     Indication: DEMENTIA ALZHEIMER^S TYPE
     Dosage: 1 CAPSULE (6MG) DAILY
  2. EXELON PATCH [Suspect]
     Active Substance: RIVASTIGMINE
     Indication: DEMENTIA ALZHEIMER^S TYPE
     Dosage: 9MG/5CM2 (4.6MG/24 HOURS), 1 PATCH DAILY
     Route: 062
  3. EXELON PATCH [Suspect]
     Active Substance: RIVASTIGMINE
     Dosage: 9MG/5CM2 (4.6MG/24 HOURS), 1 PATCH DAILY
     Route: 062

REACTIONS (6)
  - Injury [Unknown]
  - Memory impairment [Unknown]
  - Fall [Recovering/Resolving]
  - Spinal disorder [Unknown]
  - Vomiting [Recovered/Resolved]
  - Body surface area decreased [Unknown]
